FAERS Safety Report 9239159 (Version 15)
Quarter: 2015Q3

REPORT INFORMATION
  Report Type: Report from Study
  Country: CA (occurrence: CA)
  Receive Date: 20130418
  Receipt Date: 20150726
  Transmission Date: 20151125
  Serious: Yes (Death, Hospitalization, Other)
  Sender: FDA-Public Use
  Company Number: CA-ROCHE-1214587

PATIENT
  Age: 86 Year
  Sex: Female
  Weight: 74.5 kg

DRUGS (14)
  1. SERTRALINE [Concomitant]
     Active Substance: SERTRALINE HYDROCHLORIDE
  2. SEPTRA [Concomitant]
     Active Substance: SULFAMETHOXAZOLE\TRIMETHOPRIM
  3. FLOVENT [Concomitant]
     Active Substance: FLUTICASONE PROPIONATE
  4. PREDNISONE. [Concomitant]
     Active Substance: PREDNISONE
  5. ACTEMRA [Suspect]
     Active Substance: TOCILIZUMAB
     Indication: RHEUMATOID ARTHRITIS
     Dosage: 400 MG/KG
     Route: 042
     Dates: start: 20121101
  6. ATORVASTATIN [Concomitant]
     Active Substance: ATORVASTATIN
  7. LASIX [Concomitant]
     Active Substance: FUROSEMIDE
  8. ACTEMRA [Suspect]
     Active Substance: TOCILIZUMAB
     Route: 042
     Dates: start: 20140425, end: 20150522
  9. RISEDRONATE [Concomitant]
     Active Substance: RISEDRONATE SODIUM
  10. ASA [Concomitant]
     Active Substance: ASPIRIN
  11. ACTEMRA [Suspect]
     Active Substance: TOCILIZUMAB
     Indication: TEMPORAL ARTERITIS
     Route: 042
     Dates: start: 20130422
  12. TYLENOL [Concomitant]
     Active Substance: ACETAMINOPHEN
  13. DILTIAZEM [Concomitant]
     Active Substance: DILTIAZEM
  14. SPIRIVA [Concomitant]
     Active Substance: TIOTROPIUM BROMIDE MONOHYDRATE

REACTIONS (17)
  - Lung disorder [Not Recovered/Not Resolved]
  - General physical health deterioration [Fatal]
  - Localised infection [Recovered/Resolved]
  - Upper limb fracture [Not Recovered/Not Resolved]
  - Local swelling [Not Recovered/Not Resolved]
  - Chronic obstructive pulmonary disease [Not Recovered/Not Resolved]
  - Pneumonia [Recovered/Resolved]
  - Pneumonia [Unknown]
  - Nerve compression [Unknown]
  - Faecal incontinence [Unknown]
  - Ankle fracture [Not Recovered/Not Resolved]
  - Feeling hot [Unknown]
  - Immunodeficiency [Unknown]
  - Headache [Unknown]
  - Wound [Recovered/Resolved]
  - Fall [Unknown]
  - Off label use [Unknown]

NARRATIVE: CASE EVENT DATE: 20130329
